FAERS Safety Report 5448139-6 (Version None)
Quarter: 2007Q3

REPORT INFORMATION
  Report Type: 
  Country: None (occurrence: None)
  Receive Date: 20070803
  Receipt Date: 20070604
  Transmission Date: 20080115
  Serious: No
  Sender: FDA-Public Use
  Company Number: 200711718BWH

PATIENT
  Sex: Male

DRUGS (2)
  1. NEXAVAR [Suspect]
     Indication: RENAL CELL CARCINOMA STAGE UNSPECIFIED
     Dosage: 400 MG, BID, ORAL; 200 MG, BID, ORAL
     Route: 048
     Dates: start: 20060103
  2. NEXAVAR [Suspect]
     Indication: RENAL CELL CARCINOMA STAGE UNSPECIFIED
     Dosage: 400 MG, BID, ORAL; 200 MG, BID, ORAL
     Route: 048
     Dates: start: 20060701

REACTIONS (3)
  - ANOREXIA [None]
  - DIARRHOEA [None]
  - NAUSEA [None]
